FAERS Safety Report 19682715 (Version 1)
Quarter: 2021Q3

REPORT INFORMATION
  Report Type: Report from Study
  Country: US (occurrence: US)
  Receive Date: 20210810
  Receipt Date: 20210810
  Transmission Date: 20211014
  Serious: Yes (Death)
  Sender: FDA-Public Use
  Company Number: US-TAKEDA-US202030696

PATIENT
  Sex: Male

DRUGS (1)
  1. HUMAN NORMAL IMMUNOGLOBULIN; LIQUID [Suspect]
     Active Substance: HUMAN IMMUNOGLOBULIN G
     Indication: PRIMARY IMMUNODEFICIENCY SYNDROME
     Dosage: UNK
     Route: 058

REACTIONS (9)
  - Musculoskeletal stiffness [Unknown]
  - Hypersomnia [Unknown]
  - Obstruction [Unknown]
  - COVID-19 [Fatal]
  - Incontinence [Unknown]
  - Infusion site pain [Unknown]
  - Aggression [Unknown]
  - Fall [Unknown]
  - Infection [Unknown]
